FAERS Safety Report 7578038-5 (Version None)
Quarter: 2011Q2

REPORT INFORMATION
  Report Type: 
  Country: None (occurrence: None)
  Receive Date: 20110628
  Receipt Date: 20110621
  Transmission Date: 20111010
  Serious: Yes (Hospitalization, Other)
  Sender: FDA-Public Use
  Company Number: US-PFIZER INC-2011060116

PATIENT
  Sex: Female

DRUGS (14)
  1. LOVENOX [Concomitant]
     Indication: THROMBOSIS
     Dosage: UNK
  2. PERCOCET [Concomitant]
     Dosage: UNK
  3. CLONAZEPAM [Concomitant]
     Dosage: 0.5 MG, 1X/DAY HS
  4. NORVASC [Concomitant]
     Dosage: 10 MG, 1X/DAY
  5. TESSALON [Concomitant]
     Dosage: 200 MG, AS NEEDED
  6. SUTENT [Suspect]
     Dosage: 50 MG, 1X/DAY
     Dates: start: 20110407
  7. ACIPHEX [Concomitant]
     Dosage: 20 MG, 1X/DAY
  8. AUGMENTIN '125' [Concomitant]
     Indication: CELLULITIS
     Dosage: FOR SEVEN DAYS
     Dates: start: 20110314
  9. NEURONTIN [Concomitant]
     Dosage: 900 MG, 1X/DAY HS
  10. HYZAAR [Concomitant]
     Dosage: 50/12.5 MG DAILY
  11. SUTENT [Suspect]
     Indication: METASTATIC RENAL CELL CARCINOMA
     Dosage: 50 MG, DAILY X 28 DAYS Q 42 DAYS
     Route: 048
     Dates: start: 20110314, end: 20110404
  12. SYNTHROID [Concomitant]
     Dosage: 75 MCG, 1X/DAY
  13. ZANTAC [Concomitant]
     Dosage: 150 MG, 2X/DAY
     Route: 048
  14. SUTENT [Suspect]
     Dosage: 12.5 MG 3X/DAY
     Dates: start: 20110427, end: 20110517

REACTIONS (7)
  - DIARRHOEA [None]
  - PALMAR-PLANTAR ERYTHRODYSAESTHESIA SYNDROME [None]
  - HYPOTHYROIDISM [None]
  - DEHYDRATION [None]
  - THROMBOCYTOPENIA [None]
  - RENAL FAILURE ACUTE [None]
  - LYMPH GLAND INFECTION [None]
